FAERS Safety Report 25044679 (Version 2)
Quarter: 2025Q3

REPORT INFORMATION
  Report Type: Report from Study
  Country: US (occurrence: None)
  Receive Date: 20250306
  Receipt Date: 20250810
  Transmission Date: 20251021
  Serious: Yes (Hospitalization, Other)
  Sender: ALEXION PHARMACEUTICALS
  Company Number: US-ASTRAZENECA-202502USA011278US

PATIENT
  Sex: Female

DRUGS (1)
  1. OSIMERTINIB [Suspect]
     Active Substance: OSIMERTINIB
     Indication: Lung carcinoma cell type unspecified stage 0
     Dosage: 80 MILLIGRAM, QD
     Dates: start: 202203

REACTIONS (1)
  - Pericardial effusion [Unknown]
